FAERS Safety Report 17421078 (Version 1)
Quarter: 2020Q1

REPORT INFORMATION
  Report Type: Spontaneous
  Country: DE (occurrence: DE)
  Receive Date: 20200214
  Receipt Date: 20200214
  Transmission Date: 20200409
  Serious: Yes (Other)
  Sender: FDA-Public Use
  Company Number: NVSC2020DE039472

PATIENT
  Age: 46 Year
  Sex: Male

DRUGS (1)
  1. QUETIAPIN ^HEXAL^ [Suspect]
     Active Substance: QUETIAPINE FUMARATE
     Indication: PRODUCT USED FOR UNKNOWN INDICATION
     Dosage: 1750 MG, QD
     Route: 065

REACTIONS (5)
  - Bipolar disorder [Unknown]
  - Nervousness [Unknown]
  - Psychomotor hyperactivity [Unknown]
  - Aggression [Unknown]
  - Overdose [Unknown]
